FAERS Safety Report 8349376-3 (Version None)
Quarter: 2012Q2

REPORT INFORMATION
  Report Type: 
  Country: None (occurrence: None)
  Receive Date: 20120510
  Receipt Date: 20120430
  Transmission Date: 20120825
  Serious: Yes (Hospitalization)
  Sender: FDA-Public Use
  Company Number: CA-JNJFOC-20120501126

PATIENT
  Sex: Female
  Weight: 56 kg

DRUGS (5)
  1. ORTHO EVRA [Concomitant]
     Route: 065
  2. REMICADE [Suspect]
     Indication: CROHN'S DISEASE
     Route: 042
     Dates: start: 20021016
  3. MULTIPLE VITAMIN [Concomitant]
     Route: 065
  4. VALTREX [Concomitant]
     Route: 065
  5. REMICADE [Suspect]
     Dosage: 62ND INFUSION
     Route: 042
     Dates: start: 20120430

REACTIONS (1)
  - ANORECTAL OPERATION [None]
